FAERS Safety Report 23594688 (Version 1)
Quarter: 2024Q1

REPORT INFORMATION
  Report Type: Report from Study
  Country: US (occurrence: US)
  Receive Date: 20240305
  Receipt Date: 20240305
  Transmission Date: 20240409
  Serious: Yes (Other)
  Sender: FDA-Public Use
  Company Number: US-Merck Healthcare KGaA-2024010428

PATIENT
  Sex: Female

DRUGS (1)
  1. MAVENCLAD [Suspect]
     Active Substance: CLADRIBINE
     Indication: Multiple sclerosis
     Dosage: THERAPY
     Route: 048
     Dates: start: 20240115

REACTIONS (5)
  - White blood cell count decreased [Unknown]
  - Nausea [Unknown]
  - Pyrexia [Unknown]
  - Abdominal pain [Unknown]
  - Exposure to SARS-CoV-2 [Unknown]
